FAERS Safety Report 7297725-X (Version None)
Quarter: 2011Q1

REPORT INFORMATION
  Report Type: 
  Country: None (occurrence: None)
  Receive Date: 20110214
  Receipt Date: 20110214
  Transmission Date: 20110831
  Serious: Yes (Life-Threatening, Hospitalization, Disabling)
  Sender: FDA-Public Use
  Company Number: None

PATIENT
  Sex: Male
  Weight: 113.3993 kg

DRUGS (1)
  1. GAMMAGARD [Suspect]
     Indication: MYASTHENIA GRAVIS
     Dosage: INTRACAVERNOUS
     Route: 017
     Dates: start: 20110128, end: 20110130

REACTIONS (5)
  - MALAISE [None]
  - PERIPHERAL COLDNESS [None]
  - EATING DISORDER [None]
  - RENAL FAILURE [None]
  - MEMORY IMPAIRMENT [None]
